FAERS Safety Report 21883593 (Version 1)
Quarter: 2023Q1

REPORT INFORMATION
  Report Type: Spontaneous
  Country: BE (occurrence: BE)
  Receive Date: 20230119
  Receipt Date: 20230119
  Transmission Date: 20230418
  Serious: Yes (Hospitalization)
  Sender: FDA-Public Use
  Company Number: None

PATIENT
  Age: 76 Year
  Sex: Female
  Weight: 65 kg

DRUGS (6)
  1. TRASTUZUMAB [Suspect]
     Active Substance: TRASTUZUMAB
     Indication: Breast cancer female
     Dosage: FIRST DOSE ADMINISTERED ON 29/06/2020. AND THEN ALSO ON 20/07/2020, 10/08/2020, 31/08/2020 AND 14/09
     Route: 042
     Dates: start: 20200629, end: 20200914
  2. PERTUZUMAB [Suspect]
     Active Substance: PERTUZUMAB
     Indication: Breast cancer female
     Dosage: FIRST DOSE ADMINISTERED ON 29/06/2020. AND THEN ALSO ON 20/07/2020, 10/08/2020 AND 31/08/2020.
     Route: 042
     Dates: start: 20200629, end: 20200831
  3. PACLITAXEL [Suspect]
     Active Substance: PACLITAXEL
     Indication: Breast cancer female
     Dosage: FIRST DOSE ADMINISTERED ON 29/06/2020. AND THEN ALSO ON 20/07/2020, 10/08/2020, 31/08/2020 AND 14/09
     Route: 042
     Dates: start: 20200629, end: 20200914
  4. PERJETA [Suspect]
     Active Substance: PERTUZUMAB
     Indication: Breast cancer female
     Dosage: FIRST DOSE ADMINISTERED ON 29/06/2020. AND THEN ALSO ON 20/07/2020, 10/08/2020, 31/08/2020 AND 14/09
     Dates: start: 20200629, end: 20200914
  5. VITAMIN D NOS [Concomitant]
     Active Substance: VITAMIN D NOS
     Indication: Product used for unknown indication
     Dosage: UNKNOWN
     Route: 065
  6. DICLOFENAC [Concomitant]
     Active Substance: DICLOFENAC
     Indication: Product used for unknown indication
     Dosage: UNKNOWN
     Route: 065

REACTIONS (9)
  - Tachycardia [Recovered/Resolved]
  - Hypertension [Recovered/Resolved]
  - Back pain [Recovered/Resolved]
  - Hypersensitivity [Recovered/Resolved]
  - Blindness [Recovered/Resolved]
  - Pain [Recovered/Resolved]
  - Abdominal pain [Recovered/Resolved]
  - Nausea [Recovered/Resolved]
  - Product use issue [Unknown]

NARRATIVE: CASE EVENT DATE: 20200831
